FAERS Safety Report 10226517 (Version 2)
Quarter: 2014Q2

REPORT INFORMATION
  Report Type: Spontaneous
  Country: US (occurrence: US)
  Receive Date: 20140609
  Receipt Date: 20140609
  Transmission Date: 20141212
  Serious: No
  Sender: FDA-Public Use
  Company Number: US-AMGEN INC.-USASP2013069824

PATIENT
  Age: 90 Year
  Sex: Female

DRUGS (1)
  1. PROCRIT [Suspect]
     Indication: ANAEMIA
     Dosage: 20000 UNIT, QWK
     Route: 058
     Dates: start: 20130924, end: 20130930

REACTIONS (1)
  - Incorrect product storage [Unknown]
